FAERS Safety Report 25744738 (Version 2)
Quarter: 2025Q3

REPORT INFORMATION
  Report Type: Spontaneous
  Country: CA (occurrence: CA)
  Receive Date: 20250901
  Receipt Date: 20250923
  Transmission Date: 20251020
  Serious: Yes (Other)
  Sender: BRISTOL-MYERS SQUIBB COMPANY
  Company Number: CA-BRISTOL-MYERS SQUIBB COMPANY-2025-118869

PATIENT
  Age: 19 Year
  Sex: Male
  Weight: 48 kg

DRUGS (4)
  1. REBLOZYL [Suspect]
     Active Substance: LUSPATERCEPT-AAMT
     Indication: Thalassaemia beta
     Dates: start: 202411, end: 202507
  2. deferosyrox [Concomitant]
     Indication: Product used for unknown indication
     Dosage: DAILY
  3. Ferroprox [Concomitant]
     Indication: Product used for unknown indication
     Dosage: TWICE A DAY
  4. ZOLEDRONIC ACID [Concomitant]
     Active Substance: ZOLEDRONIC ACID
     Indication: Product used for unknown indication
     Dosage: EVERY 6 MONTHS

REACTIONS (1)
  - Pulmonary embolism [Unknown]

NARRATIVE: CASE EVENT DATE: 20250722
